FAERS Safety Report 9881873 (Version 7)
Quarter: 2014Q2

REPORT INFORMATION
  Report Type: Report from Study
  Country: US (occurrence: US)
  Receive Date: 20140207
  Receipt Date: 20140530
  Transmission Date: 20141212
  Serious: Yes (Hospitalization)
  Sender: FDA-Public Use
  Company Number: US-SA-2014SA006914

PATIENT
  Age: 51 Year
  Sex: Female
  Weight: 113.4 kg

DRUGS (7)
  1. AUBAGIO [Suspect]
     Indication: MULTIPLE SCLEROSIS
     Route: 048
     Dates: start: 20140112, end: 20140119
  2. AUBAGIO [Suspect]
     Indication: MULTIPLE SCLEROSIS
     Route: 048
     Dates: start: 20140327, end: 201405
  3. AUBAGIO [Suspect]
     Indication: MULTIPLE SCLEROSIS
     Route: 048
     Dates: start: 201405
  4. AMPYRA [Suspect]
     Indication: GAIT DISTURBANCE
     Route: 048
     Dates: start: 201308
  5. CIPRO [Suspect]
     Indication: PRODUCT USED FOR UNKNOWN INDICATION
     Route: 065
  6. METHOTREXATE [Concomitant]
     Dosage: APR-2013 OR MAY-2013
  7. PREDNISONE [Concomitant]
     Dates: start: 201306

REACTIONS (15)
  - Kidney infection [Recovering/Resolving]
  - Nephrolithiasis [Recovering/Resolving]
  - Back pain [Recovering/Resolving]
  - Pain [Not Recovered/Not Resolved]
  - Muscle spasms [Unknown]
  - Movement disorder [Unknown]
  - Drug hypersensitivity [Unknown]
  - Asthenia [Recovering/Resolving]
  - Abdominal pain lower [Recovering/Resolving]
  - Nausea [Unknown]
  - Fatigue [Unknown]
  - Multiple sclerosis [Recovering/Resolving]
  - Rash [Unknown]
  - Abdominal discomfort [Unknown]
  - Drug dose omission [Unknown]
